FAERS Safety Report 9105047 (Version 4)
Quarter: 2013Q3

REPORT INFORMATION
  Report Type: Spontaneous
  Country: BH (occurrence: BH)
  Receive Date: 20130220
  Receipt Date: 20130823
  Transmission Date: 20140515
  Serious: Yes (Life-Threatening, Hospitalization)
  Sender: FDA-Public Use
  Company Number: BH-SANOFI-AVENTIS-2013SA015131

PATIENT
  Sex: Male

DRUGS (10)
  1. PLAVIX [Suspect]
     Indication: THROMBOSIS PROPHYLAXIS
     Route: 048
     Dates: start: 201212
  2. PLAVIX [Suspect]
     Indication: PERCUTANEOUS CORONARY INTERVENTION
     Route: 048
     Dates: start: 201212
  3. WARFARIN [Concomitant]
     Route: 048
     Dates: start: 201212
  4. LASIX [Concomitant]
     Route: 048
     Dates: start: 201212
  5. CRESTOR [Concomitant]
     Dosage: 20 NOS
     Route: 048
     Dates: start: 201212
  6. ALDACTONE [Concomitant]
     Dosage: 25 NOS
     Route: 048
     Dates: start: 201212
  7. ASPIRIN [Concomitant]
     Route: 048
  8. IVABRADINE HYDROCHLORIDE [Concomitant]
     Route: 065
  9. IMDUR [Concomitant]
     Dosage: 60 NOS
     Route: 065
  10. CONCOR [Concomitant]
     Dosage: 10 NOS
     Route: 065

REACTIONS (3)
  - Thrombosis in device [Not Recovered/Not Resolved]
  - Product quality issue [Unknown]
  - Drug ineffective [Unknown]
